FAERS Safety Report 19953795 (Version 2)
Quarter: 2021Q4

REPORT INFORMATION
  Report Type: Report from Study
  Country: GR (occurrence: GR)
  Receive Date: 20211013
  Receipt Date: 20211021
  Transmission Date: 20220303
  Serious: Yes (Death, Hospitalization)
  Sender: FDA-Public Use
  Company Number: GR-ELI_LILLY_AND_COMPANY-GR202110001240

PATIENT
  Age: 91 Year
  Sex: Male

DRUGS (8)
  1. TERIPARATIDE [Suspect]
     Active Substance: TERIPARATIDE
     Indication: Osteoporosis
     Dosage: 20 UG, DAILY
     Route: 058
     Dates: start: 20191129, end: 202109
  2. LASIX [Concomitant]
     Active Substance: FUROSEMIDE
     Indication: Blood pressure abnormal
  3. LERCANIDIPINE HYDROCHLORIDE [Concomitant]
     Active Substance: LERCANIDIPINE HYDROCHLORIDE
     Indication: Blood pressure abnormal
  4. PRADAXA [Concomitant]
     Active Substance: DABIGATRAN ETEXILATE MESYLATE
     Indication: Atrial fibrillation
  5. LOPRESSOR [Concomitant]
     Active Substance: METOPROLOL TARTRATE
     Indication: Heart rate increased
  6. PIROXICAM [Concomitant]
     Active Substance: PIROXICAM
     Indication: Chronic obstructive pulmonary disease
  7. ALFURAL [Concomitant]
     Indication: Urinary tract disorder
  8. BROMAZEPAM [Concomitant]
     Active Substance: BROMAZEPAM
     Indication: Product used for unknown indication

REACTIONS (6)
  - Plasma cell myeloma [Fatal]
  - Acute kidney injury [Fatal]
  - Cardiac failure [Fatal]
  - Fall [Unknown]
  - Pyrexia [Recovered/Resolved]
  - Decreased appetite [Unknown]

NARRATIVE: CASE EVENT DATE: 20210901
